FAERS Safety Report 11283962 (Version 2)
Quarter: 2015Q3

REPORT INFORMATION
  Report Type: Other
  Country: US (occurrence: US)
  Receive Date: 20150720
  Receipt Date: 20150820
  Transmission Date: 20151125
  Serious: Yes (Other)
  Sender: FDA-Public Use
  Company Number: US-ACORDA-ACO_114085_2015

PATIENT
  Age: 50 Year
  Sex: Female

DRUGS (1)
  1. AMPYRA [Suspect]
     Active Substance: DALFAMPRIDINE
     Indication: PRODUCT USED FOR UNKNOWN INDICATION
     Dosage: 10 MG, Q 12 HRS
     Route: 065
     Dates: start: 20150101

REACTIONS (4)
  - Seizure [Unknown]
  - Drug ineffective [Recovered/Resolved]
  - Seizure [Unknown]
  - Contraindicated drug administered [Unknown]

NARRATIVE: CASE EVENT DATE: 2015
